FAERS Safety Report 4417946-0 (Version None)
Quarter: 2004Q3

REPORT INFORMATION
  Report Type: 
  Country: None (occurrence: None)
  Receive Date: 20040803
  Receipt Date: 20040720
  Transmission Date: 20050211
  Serious: Yes (Life-Threatening, Hospitalization, Disabling)
  Sender: FDA-Public Use
  Company Number: 2003IM000830

PATIENT
  Age: 26 Year
  Sex: Male

DRUGS (3)
  1. ADVAFERON (A643_INTERFERON ALFACON-1) [Suspect]
     Indication: HEPATITIS C
     Dosage: 18 MU; QD; SUBCUTANEOUS
     Route: 058
     Dates: start: 20030714, end: 20030726
  2. FAMOTIDINE [Concomitant]
  3. ETODOLAC [Concomitant]

REACTIONS (8)
  - DIALYSIS [None]
  - EPILEPSY [None]
  - FALL [None]
  - LOSS OF CONSCIOUSNESS [None]
  - MEMORY IMPAIRMENT [None]
  - PYREXIA [None]
  - RENAL FAILURE ACUTE [None]
  - RHABDOMYOLYSIS [None]
